FAERS Safety Report 7370324-7 (Version None)
Quarter: 2011Q1

REPORT INFORMATION
  Report Type: 
  Country: None (occurrence: None)
  Receive Date: 20110323
  Receipt Date: 20110317
  Transmission Date: 20110831
  Serious: Yes (Other)
  Sender: FDA-Public Use
  Company Number: US-PFIZER INC-2011029569

PATIENT
  Sex: Female

DRUGS (8)
  1. MAGNESIUM [Concomitant]
     Dosage: UNK
  2. ZANTAC [Concomitant]
     Dosage: UNK
  3. LOPRESSOR [Concomitant]
     Dosage: UNK
  4. CALAN [Suspect]
     Indication: HYPERTENSION
     Dosage: 360 MG, 2X/DAY
     Route: 048
  5. ATACAND [Concomitant]
     Dosage: UNK
  6. FUROSEMIDE [Concomitant]
     Indication: POLYURIA
     Dosage: UNK
  7. CALAN [Suspect]
     Dosage: 240 MG, 2X/DAY
     Route: 048
  8. CALCIUM [Concomitant]
     Dosage: UNK

REACTIONS (2)
  - ROAD TRAFFIC ACCIDENT [None]
  - INTERVERTEBRAL DISC DISORDER [None]
